FAERS Safety Report 22932809 (Version 3)
Quarter: 2023Q4

REPORT INFORMATION
  Report Type: Spontaneous
  Country: US (occurrence: US)
  Receive Date: 20230912
  Receipt Date: 20231204
  Transmission Date: 20240109
  Serious: Yes (Life-Threatening)
  Sender: FDA-Public Use
  Company Number: US-JNJFOC-20230914693

PATIENT
  Age: 62 Year
  Sex: Female
  Weight: 79.45 kg

DRUGS (23)
  1. STELARA [Suspect]
     Active Substance: USTEKINUMAB
     Indication: Psoriasis
     Route: 058
     Dates: start: 20181204
  2. STELARA [Suspect]
     Active Substance: USTEKINUMAB
     Dosage: FORM STRENGTH: 45MG/0.5ML. PREVIOUS DRUG APPLICATION: 06-SEP-2023.
     Route: 058
     Dates: start: 20230503
  3. PROVENTIL [Concomitant]
     Active Substance: ALBUTEROL
     Indication: Wheezing
     Dosage: 180MCG (2PUFFS TOTAL)
     Route: 065
     Dates: start: 20230905
  4. PROAIR HFA [Concomitant]
     Active Substance: ALBUTEROL SULFATE
     Indication: Wheezing
     Dosage: 180MCG (2PUFFS TOTAL)
     Route: 065
     Dates: start: 20230905
  5. VENTOLIN HFA [Concomitant]
     Active Substance: ALBUTEROL SULFATE
     Indication: Wheezing
     Dosage: 180MCG (2PUFFS TOTAL)
     Route: 065
     Dates: start: 20230905
  6. BIOTIN [Concomitant]
     Active Substance: BIOTIN
     Route: 048
  7. CETIRIZINE HYDROCHLORIDE [Concomitant]
     Active Substance: CETIRIZINE HYDROCHLORIDE
     Indication: Hypersensitivity
     Route: 048
     Dates: start: 20230906
  8. TEMOVATE [Concomitant]
     Active Substance: CLOBETASOL PROPIONATE
     Route: 061
     Dates: start: 20230908
  9. DECADRON [Concomitant]
     Active Substance: DEXAMETHASONE
     Dosage: 2 TABLETS BY MOUTH(8MG IN TOTAL) DAILY FOR 2 DAYS STARTING AFTER LAST DAY OF CHEMOTHERAPY.
     Route: 048
     Dates: start: 20230920
  10. COLACE [Concomitant]
     Active Substance: DOCUSATE SODIUM
     Route: 048
  11. ALLEGRA [Concomitant]
     Active Substance: FEXOFENADINE HYDROCHLORIDE
     Route: 048
     Dates: start: 20230705
  12. PROZAC [Concomitant]
     Active Substance: FLUOXETINE HYDROCHLORIDE
     Route: 048
     Dates: start: 20230925
  13. NEURONTIN [Concomitant]
     Active Substance: GABAPENTIN
     Route: 048
     Dates: start: 20230127
  14. HYALURONIC ACID [Concomitant]
     Active Substance: HYALURONIC ACID
     Dosage: 40-80-400 MG
     Route: 048
  15. MOTRIN [Concomitant]
     Active Substance: IBUPROFEN
     Indication: Pain
     Route: 048
  16. IMODIUM [Concomitant]
     Active Substance: LOPERAMIDE HYDROCHLORIDE
     Route: 048
  17. MAGNESIUM [Concomitant]
     Active Substance: MAGNESIUM
     Route: 048
  18. FLAGYL [Concomitant]
     Active Substance: METRONIDAZOLE\METRONIDAZOLE HYDROCHLORIDE
     Dosage: PATIENT NOT TAKING: REPORTED ON 20-SEP-2023
     Route: 048
     Dates: start: 20230829
  19. NEOMYCIN [Concomitant]
     Active Substance: NEOMYCIN
     Dosage: 2 TABLETS(1,000MG). PATIENT NOT TAKING: REPORTED ON 20-SEP-2023
     Route: 048
     Dates: start: 20230828
  20. PRILOSEC [Concomitant]
     Active Substance: OMEPRAZOLE MAGNESIUM
     Route: 048
  21. MAXALT [Concomitant]
     Active Substance: RIZATRIPTAN BENZOATE
     Route: 048
  22. SENNA LEAF [Concomitant]
     Active Substance: SENNA LEAF
     Route: 048
  23. ZOCOR [Concomitant]
     Active Substance: SIMVASTATIN
     Route: 048
     Dates: start: 20230526

REACTIONS (2)
  - Ovarian cancer [Not Recovered/Not Resolved]
  - Psoriasis [Unknown]

NARRATIVE: CASE EVENT DATE: 20230828
